FAERS Safety Report 24399911 (Version 1)
Quarter: 2024Q4

REPORT INFORMATION
  Report Type: Spontaneous
  Country: US (occurrence: US)
  Receive Date: 20241005
  Receipt Date: 20241005
  Transmission Date: 20250115
  Serious: No
  Sender: ABBVIE
  Company Number: US-ABBVIE-5943812

PATIENT
  Sex: Female

DRUGS (1)
  1. HUMIRA [Suspect]
     Active Substance: ADALIMUMAB
     Indication: Psoriasis
     Route: 058

REACTIONS (9)
  - Vulvovaginal pain [Unknown]
  - Rash erythematous [Unknown]
  - Hypotonia [Unknown]
  - Pruritus [Unknown]
  - Sitting disability [Unknown]
  - Fatigue [Unknown]
  - Infection [Unknown]
  - Psoriasis [Unknown]
  - Vulvovaginal pruritus [Unknown]
